FAERS Safety Report 8697493 (Version 4)
Quarter: 2012Q4

REPORT INFORMATION
  Report Type: 
  Country: RU (occurrence: RU)
  Receive Date: 20120801
  Receipt Date: 20121102
  Transmission Date: 20130627
  Serious: Yes (Other)
  Sender: FDA-Public Use
  Company Number: RU-ABBOTT-12P-251-0961602-00

PATIENT
  Age: 3 Year
  Sex: Female

DRUGS (5)
  1. DEPAKIN CHRONO [Suspect]
     Indication: EPILEPSY
     Route: 048
     Dates: start: 201204, end: 201206
  2. DEPAKIN CHRONO [Suspect]
     Route: 048
     Dates: start: 201206, end: 20120709
  3. DEPAKIN CHRONO [Suspect]
     Dates: start: 20120709
  4. VALPROATE SODIUM [Concomitant]
     Indication: PRODUCT USED FOR UNKNOWN INDICATION
  5. DEPAKIN [Concomitant]
     Indication: PRODUCT USED FOR UNKNOWN INDICATION

REACTIONS (5)
  - Product counterfeit [Unknown]
  - Epilepsy [Recovered/Resolved]
  - Muscle twitching [Recovered/Resolved]
  - Condition aggravated [Recovered/Resolved]
  - Drug ineffective [Recovered/Resolved]
